FAERS Safety Report 18648646 (Version 1)
Quarter: 2020Q4

REPORT INFORMATION
  Report Type: Spontaneous
  Country: US (occurrence: US)
  Receive Date: 20201222
  Receipt Date: 20201222
  Transmission Date: 20210114
  Serious: Yes (Other)
  Sender: FDA-Public Use
  Company Number: None

PATIENT
  Age: 28 Year
  Sex: Female
  Weight: 124.2 kg

DRUGS (2)
  1. CLEAN N FRESH INSTANT HAND SANITIZER ANTIBACTERIAL [Suspect]
     Active Substance: ALCOHOL
  2. XOPENEX INHALER [Concomitant]

REACTIONS (2)
  - Nausea [None]
  - Product odour abnormal [None]

NARRATIVE: CASE EVENT DATE: 20201206
